FAERS Safety Report 5096010-4 (Version None)
Quarter: 2006Q3

REPORT INFORMATION
  Report Type: 
  Country: None (occurrence: None)
  Receive Date: 20060905
  Receipt Date: 20060829
  Transmission Date: 20061208
  Serious: Yes (Death)
  Sender: FDA-Public Use
  Company Number: JP-JPN-A200603409

PATIENT
  Age: 70 Year
  Sex: Female

DRUGS (8)
  1. PAXIL [Suspect]
     Indication: DRUG USE FOR UNKNOWN INDICATION
     Route: 048
     Dates: start: 20060815, end: 20060827
  2. AMOBAN [Concomitant]
     Route: 048
  3. ESTAZOLAM [Concomitant]
     Route: 048
  4. TEGRETOL [Concomitant]
     Route: 048
  5. LOXONIN [Concomitant]
     Route: 048
  6. NORVASC [Concomitant]
     Route: 048
  7. DEPO-MEDROL [Concomitant]
  8. PENTAZOCINE LACTATE [Concomitant]

REACTIONS (1)
  - COMPLETED SUICIDE [None]
